FAERS Safety Report 6542024-4 (Version None)
Quarter: 2010Q1

REPORT INFORMATION
  Report Type: 
  Country: None (occurrence: None)
  Receive Date: 20100119
  Receipt Date: 20100108
  Transmission Date: 20100710
  Serious: Yes (Other)
  Sender: FDA-Public Use
  Company Number: BR-JNJCH-2010000552

PATIENT
  Age: 3 Year
  Sex: Female
  Weight: 18 kg

DRUGS (1)
  1. LISTERINE [Suspect]
     Indication: ACCIDENTAL EXPOSURE
     Dosage: TEXT:^ABOUT TWO VOLUMES OF FLASCK CAP^
     Route: 048
     Dates: start: 20100111, end: 20100111

REACTIONS (4)
  - ACCIDENTAL EXPOSURE [None]
  - ASTHMATIC CRISIS [None]
  - RESPIRATORY FAILURE [None]
  - VOMITING [None]
